FAERS Safety Report 20974060 (Version 1)
Quarter: 2022Q2

REPORT INFORMATION
  Report Type: Report from Study
  Country: US (occurrence: US)
  Receive Date: 20220617
  Receipt Date: 20220617
  Transmission Date: 20220721
  Serious: Yes (Hospitalization)
  Sender: FDA-Public Use
  Company Number: US-ABBVIE-22K-163-4433077-00

PATIENT
  Sex: Female

DRUGS (2)
  1. DUOPA [Suspect]
     Active Substance: CARBIDOPA\LEVODOPA
     Indication: Product used for unknown indication
     Route: 050
     Dates: start: 20210830
  2. DUOPA [Suspect]
     Active Substance: CARBIDOPA\LEVODOPA

REACTIONS (10)
  - Vital functions abnormal [Recovering/Resolving]
  - Pulse abnormal [Unknown]
  - Blood pressure abnormal [Unknown]
  - Mobility decreased [Unknown]
  - Pain [Unknown]
  - Dyskinesia [Unknown]
  - Insomnia [Unknown]
  - Device issue [Unknown]
  - Device occlusion [Unknown]
  - Emotional distress [Unknown]
